FAERS Safety Report 13321150 (Version 1)
Quarter: 2017Q1

REPORT INFORMATION
  Report Type: Spontaneous
  Country: US (occurrence: US)
  Receive Date: 20170310
  Receipt Date: 20170310
  Transmission Date: 20170428
  Serious: Yes (Other)
  Sender: FDA-Public Use
  Company Number: None

PATIENT
  Age: 73 Year
  Sex: Female
  Weight: 84.15 kg

DRUGS (10)
  1. FLAXSEED [Concomitant]
     Active Substance: FLAX SEED
  2. BABY ASPIRIN [Concomitant]
     Active Substance: ASPIRIN
  3. NEOMYCIN AND POLYMYXIN B SULFATE [Suspect]
     Active Substance: NEOMYCIN\POLYMYXIN B SULFATE
     Indication: CATARACT
     Dosage: ?          QUANTITY:1 DROP(S);?
     Route: 047
     Dates: start: 20170220, end: 20170227
  4. LIPITOR [Concomitant]
     Active Substance: ATORVASTATIN CALCIUM
  5. ARIMIDEX [Concomitant]
     Active Substance: ANASTROZOLE
  6. VITAMIN B12 [Concomitant]
     Active Substance: CYANOCOBALAMIN
  7. GENTAMICIN SULFATE OPHTHALMIC SOLUTION USP 0.3% [Suspect]
     Active Substance: GENTAMICIN SULFATE
     Indication: CATARACT
     Dosage: ?          QUANTITY:1 DROP(S);?
     Route: 047
     Dates: start: 20170220, end: 20170227
  8. FISH OIL [Concomitant]
     Active Substance: FISH OIL
  9. CALCIUM [Concomitant]
     Active Substance: CALCIUM
  10. CRANBERRY TABLETS [Concomitant]

REACTIONS (3)
  - Product outer packaging issue [None]
  - Product label on wrong product [None]
  - Wrong drug administered [None]

NARRATIVE: CASE EVENT DATE: 20170307
